FAERS Safety Report 15521764 (Version 1)
Quarter: 2018Q4

REPORT INFORMATION
  Report Type: Spontaneous
  Country: US (occurrence: US)
  Receive Date: 20181018
  Receipt Date: 20181018
  Transmission Date: 20190205
  Serious: Yes (Hospitalization, Other)
  Sender: FDA-Public Use
  Company Number: None

PATIENT
  Age: 68 Year
  Sex: Male

DRUGS (23)
  1. DILTIAZEM EXTENDED RELEASE [Suspect]
     Active Substance: DILTIAZEM
     Indication: ATRIAL FIBRILLATION
     Dosage: ?          QUANTITY:2 CAPSULE(S);?
     Route: 048
  2. TADALAFIL. [Concomitant]
     Active Substance: TADALAFIL
  3. FINASTERIDE. [Concomitant]
     Active Substance: FINASTERIDE
  4. IMIQUIMOD 5% CREAM [Concomitant]
  5. METOPROLOL SUCCINATE 50MG [Concomitant]
     Active Substance: METOPROLOL SUCCINATE
  6. ANDROGEL [Concomitant]
     Active Substance: TESTOSTERONE
  7. SAW PALMETTO [Concomitant]
     Active Substance: HERBALS\SAW PALMETTO
  8. INVOKANA [Concomitant]
     Active Substance: CANAGLIFLOZIN
  9. GABAPENTIN. [Concomitant]
     Active Substance: GABAPENTIN
  10. MVI DAILY [Concomitant]
  11. ASPIRIN. [Concomitant]
     Active Substance: ASPIRIN
  12. PANTOPRAZOLE SODIUM. [Concomitant]
     Active Substance: PANTOPRAZOLE SODIUM
  13. ELIQUIS [Concomitant]
     Active Substance: APIXABAN
  14. LOSARTAN. [Concomitant]
     Active Substance: LOSARTAN
  15. TAMSULOSIN [Concomitant]
     Active Substance: TAMSULOSIN
  16. TRULICITY [Concomitant]
     Active Substance: DULAGLUTIDE
  17. TADALAFIL. [Concomitant]
     Active Substance: TADALAFIL
  18. FISH OIL 4000MG [Concomitant]
  19. METFORMIN ER 1000MG BID [Concomitant]
  20. PROBIOTIC [Concomitant]
     Active Substance: PROBIOTICS NOS
  21. VITAMIN D3 [Concomitant]
     Active Substance: CHOLECALCIFEROL
  22. PURE BAKING SODA [Concomitant]
     Active Substance: SODIUM BICARBONATE
  23. ITIRES [Concomitant]

REACTIONS (7)
  - Insomnia [None]
  - Somnambulism [None]
  - Dyspnoea [None]
  - Circadian rhythm sleep disorder [None]
  - Road traffic accident [None]
  - Therapy change [None]
  - Therapy cessation [None]

NARRATIVE: CASE EVENT DATE: 20180822
